FAERS Safety Report 7832451-7 (Version None)
Quarter: 2011Q4

REPORT INFORMATION
  Report Type: 
  Country: None (occurrence: None)
  Receive Date: 20111023
  Receipt Date: 20110922
  Transmission Date: 20120403
  Serious: Yes (Other)
  Sender: FDA-Public Use
  Company Number: PHHY2011BR90680

PATIENT
  Age: 69 Year
  Sex: Male

DRUGS (3)
  1. DIOVAN HCT [Suspect]
     Indication: HYPERTENSION
     Dosage: 1 DF (160/12.5 MG)
  2. DIOVAN HCT [Suspect]
     Dosage: 1 DF, (320/12.5 MG)
  3. ATENOLOL [Suspect]
     Dosage: 25 MG, (PER DAY)

REACTIONS (2)
  - HEART RATE DECREASED [None]
  - BLOOD PRESSURE INCREASED [None]
